FAERS Safety Report 9670657 (Version 4)
Quarter: 2014Q1

REPORT INFORMATION
  Report Type: Spontaneous
  Country: US (occurrence: US)
  Receive Date: 20131106
  Receipt Date: 20140228
  Transmission Date: 20141002
  Serious: Yes (Death, Other)
  Sender: FDA-Public Use
  Company Number: US-BRISTOL-MYERS SQUIBB COMPANY-19715317

PATIENT
  Age: 67 Year
  Sex: Female
  Weight: 92.97 kg

DRUGS (15)
  1. BYETTA PEN DISPOSABLE [Suspect]
     Indication: TYPE 2 DIABETES MELLITUS
     Dosage: 16FEB2010: 10 MCG BID
     Route: 058
     Dates: start: 20090526
  2. SIMVASTATIN [Concomitant]
     Indication: BLOOD CHOLESTEROL
     Route: 048
  3. ACCUPRIL [Concomitant]
     Dosage: 40 MG 2: AT MORNING
     Route: 048
     Dates: start: 20070824
  4. MICROZIDE [Concomitant]
     Indication: BLOOD PRESSURE
     Dosage: TAB
     Route: 048
     Dates: start: 20060116
  5. VERELAN [Concomitant]
     Dosage: TAB
     Route: 048
     Dates: start: 20070824
  6. ACTOS [Concomitant]
     Dosage: TAB?ALSO TAKEN IN 15MG DOSE
     Route: 048
     Dates: start: 20080212
  7. GLUCOPHAGE [Concomitant]
     Dosage: TAB?WITH SUPPER
     Route: 048
     Dates: start: 20030305
  8. AMARYL [Concomitant]
     Dosage: 4 MG TAB?1 DF=1.5 TAB, MORNING?16FEB2010; 1 DF=2 TAB
     Route: 048
     Dates: start: 20081229
  9. CARAFATE [Concomitant]
     Route: 048
  10. OMEPRAZOLE [Concomitant]
     Route: 048
  11. ACCUPRIL [Concomitant]
     Route: 048
  12. NOVOLOG [Concomitant]
  13. NOVOLOG [Concomitant]
     Dosage: 1DF:100 UNITS
  14. POTASSIUM CHLORIDE [Concomitant]
     Route: 048
  15. LEVEMIR [Concomitant]
     Dosage: 1DF:15 UNITS AT NIGHT TIME

REACTIONS (7)
  - Pancreatic carcinoma [Fatal]
  - Metastatic neoplasm [Unknown]
  - Deep vein thrombosis [Unknown]
  - Cholelithiasis [Unknown]
  - Gallbladder disorder [Unknown]
  - Portal vein thrombosis [Unknown]
  - Ascites [Unknown]
